FAERS Safety Report 9675694 (Version 3)
Quarter: 2014Q1

REPORT INFORMATION
  Report Type: Spontaneous
  Country: DE (occurrence: DE)
  Receive Date: 20131107
  Receipt Date: 20140210
  Transmission Date: 20141002
  Serious: Yes (Hospitalization, Disabling, Other)
  Sender: FDA-Public Use
  Company Number: DE-THROMBOGENICS NV-JET-2013-292

PATIENT
  Sex: Male

DRUGS (2)
  1. JETREA [Suspect]
     Indication: VITREOUS ADHESIONS
     Dosage: 0.125 MG, ONE TIME DOSE
     Route: 031
     Dates: start: 20131009, end: 20131009
  2. OFLOXACIN                          /00731802/ [Concomitant]
     Indication: INFECTION PROPHYLAXIS
     Dosage: 1 DROP, TID
     Route: 065
     Dates: start: 20131009, end: 20131013

REACTIONS (2)
  - Endophthalmitis [Not Recovered/Not Resolved]
  - Suspected transmission of an infectious agent via product [Unknown]
